FAERS Safety Report 7703843-1 (Version None)
Quarter: 2011Q3

REPORT INFORMATION
  Report Type: 
  Country: None (occurrence: None)
  Receive Date: 20110823
  Receipt Date: 20101201
  Transmission Date: 20111222
  Serious: No
  Sender: FDA-Public Use
  Company Number: US-BAYER-2010-007351

PATIENT
  Sex: Female

DRUGS (2)
  1. AMPICILLIN SODIUM [Concomitant]
     Indication: BRONCHITIS
  2. MIRENA [Suspect]
     Indication: CONTRACEPTION
     Dosage: 20 MCG/24HR, CONT
     Route: 015
     Dates: start: 20080328

REACTIONS (2)
  - BRONCHITIS [None]
  - AMENORRHOEA [None]
